FAERS Safety Report 10169454 (Version 1)
Quarter: 2014Q2

REPORT INFORMATION
  Report Type: Spontaneous
  Country: US (occurrence: US)
  Receive Date: 20140513
  Receipt Date: 20140513
  Transmission Date: 20141212
  Serious: No
  Sender: FDA-Public Use
  Company Number: US-PFIZER INC-2014129257

PATIENT
  Age: 79 Year
  Sex: Male
  Weight: 81 kg

DRUGS (11)
  1. SUTENT [Suspect]
     Indication: HEPATOCELLULAR CARCINOMA
     Dosage: 50 MG, 1X/DAY
     Dates: start: 20140212
  2. ATENOLOL [Concomitant]
     Dosage: UNK
  3. PRAVASTATIN [Concomitant]
     Dosage: UNK
  4. TAMSULOSIN [Concomitant]
     Dosage: UNK
  5. FINASTERIDE [Concomitant]
     Dosage: UNK
  6. LISINOPRIL [Concomitant]
     Dosage: UNK
  7. ASPIRIN [Concomitant]
     Dosage: UNK
  8. VITAMIN B [Concomitant]
     Dosage: UNK
  9. OMEPRAZOLE [Concomitant]
     Dosage: UNK
  10. TYLENOL [Concomitant]
     Dosage: UNK
  11. TYLENOL WITH CODEINE [Concomitant]
     Dosage: UNK

REACTIONS (7)
  - Pruritus [Unknown]
  - Oral pain [Unknown]
  - Balance disorder [Unknown]
  - Pain in extremity [Unknown]
  - Arthralgia [Unknown]
  - Gait disturbance [Unknown]
  - Off label use [Unknown]
